FAERS Safety Report 8868112 (Version 1)
Quarter: 2012Q4

REPORT INFORMATION
  Report Type: 
  Country: US (occurrence: US)
  Receive Date: 20121026
  Receipt Date: 20121026
  Transmission Date: 20130627
  Serious: No
  Sender: FDA-Public Use
  Company Number: US-AMGEN-USASP2012040820

PATIENT
  Age: 52 Year
  Sex: Female
  Weight: 58.96 kg

DRUGS (7)
  1. ENBREL [Suspect]
     Indication: PRODUCT USED FOR UNKNOWN INDICATION
     Dosage: 50 mg, qwk
     Route: 058
  2. IBUPROFEN [Concomitant]
  3. METHOTREXATE [Concomitant]
  4. AMITRIPTYLIN [Concomitant]
     Dosage: 10 mg, UNK
  5. CALCIUM + VIT D [Concomitant]
     Dosage: 500 UNK, UNK
  6. FISH OIL [Concomitant]
  7. FOLIC ACID [Concomitant]

REACTIONS (3)
  - Needle issue [Unknown]
  - Puncture site pain [Unknown]
  - Injection site pain [Unknown]
